FAERS Safety Report 8370416-X (Version None)
Quarter: 2012Q2

REPORT INFORMATION
  Report Type: 
  Country: None (occurrence: None)
  Receive Date: 20120518
  Receipt Date: 20120510
  Transmission Date: 20120825
  Serious: No
  Sender: FDA-Public Use
  Company Number: US-PFIZER INC-2012081579

PATIENT
  Sex: Female

DRUGS (4)
  1. KEFLEX [Suspect]
     Dosage: UNK
  2. EXCEDRIN (ASPIRIN/CAFFEINE/PARACETAMOL) [Suspect]
     Dosage: UNK
  3. EPINEPHRINE [Suspect]
     Dosage: UNK
  4. DEMEROL [Suspect]
     Dosage: UNK

REACTIONS (1)
  - DRUG HYPERSENSITIVITY [None]
